FAERS Safety Report 5252691-3 (Version None)
Quarter: 2007Q1

REPORT INFORMATION
  Report Type: 
  Country: None (occurrence: None)
  Receive Date: 20070301
  Receipt Date: 20061109
  Transmission Date: 20070707
  Serious: No
  Sender: FDA-Public Use
  Company Number: US-GLAXOSMITHKLINE-A0626892A

PATIENT
  Age: 59 Year
  Sex: Female

DRUGS (3)
  1. LAMICTAL [Suspect]
     Indication: DRUG USE FOR UNKNOWN INDICATION
     Dosage: 25MG PER DAY
     Route: 048
     Dates: start: 20061001, end: 20061101
  2. WELLBUTRIN XL [Concomitant]
  3. ZOLOFT [Concomitant]

REACTIONS (3)
  - IRRITABILITY [None]
  - STRESS [None]
  - TENSION [None]
